FAERS Safety Report 21881713 (Version 2)
Quarter: 2023Q1

REPORT INFORMATION
  Report Type: Report from Study
  Country: FR (occurrence: FR)
  Receive Date: 20230119
  Receipt Date: 20230123
  Transmission Date: 20230418
  Serious: Yes (Death)
  Sender: FDA-Public Use
  Company Number: FR-002147023-NVSC2023FR010586

PATIENT
  Age: 48 Year
  Sex: Male

DRUGS (2)
  1. CAPMATINIB [Suspect]
     Active Substance: CAPMATINIB
     Indication: Oesophageal cancer metastatic
     Dosage: 100 MG
     Route: 048
  2. SPARTALIZUMAB [Suspect]
     Active Substance: SPARTALIZUMAB
     Indication: Oesophageal cancer metastatic
     Dosage: 100 MG
     Route: 042

REACTIONS (1)
  - General physical health deterioration [Fatal]

NARRATIVE: CASE EVENT DATE: 20221104
